FAERS Safety Report 15317338 (Version 1)
Quarter: 2018Q3

REPORT INFORMATION
  Report Type: Spontaneous
  Country: US (occurrence: US)
  Receive Date: 20180816
  Receipt Date: 20180816
  Transmission Date: 20181010
  Serious: No
  Sender: FDA-Public Use
  Company Number: None

PATIENT
  Age: 56 Year
  Sex: Female

DRUGS (1)
  1. TALTZ [Suspect]
     Active Substance: IXEKIZUMAB
     Route: 058
     Dates: start: 20180522, end: 20180816

REACTIONS (3)
  - Therapy cessation [None]
  - Urinary tract infection [None]
  - Drug ineffective [None]

NARRATIVE: CASE EVENT DATE: 20180815
